FAERS Safety Report 9629459 (Version 1)
Quarter: 2013Q4

REPORT INFORMATION
  Report Type: Spontaneous
  Country: BR (occurrence: BR)
  Receive Date: 20131017
  Receipt Date: 20131017
  Transmission Date: 20140711
  Serious: Yes (Hospitalization)
  Sender: FDA-Public Use
  Company Number: BR-NOVOPROD-389869

PATIENT
  Sex: Female
  Weight: 89 kg

DRUGS (4)
  1. NOVOLIN N [Suspect]
     Indication: TYPE 2 DIABETES MELLITUS
     Dosage: 20 IU IN THE MORNING + 15 IU IN THE AFTERNOON
     Route: 058
     Dates: start: 2009
  2. METFORMIN [Concomitant]
     Indication: TYPE 2 DIABETES MELLITUS
     Dosage: 3 TAB (850 MG) , QD
     Route: 048
  3. LOSARTAN [Concomitant]
     Indication: HYPERTENSION
     Dosage: 2 TAB, QD
     Route: 048
  4. LANTUS [Concomitant]

REACTIONS (2)
  - Hiatus hernia [Unknown]
  - Liquid product physical issue [Unknown]
